FAERS Safety Report 8540486-4 (Version None)
Quarter: 2012Q3

REPORT INFORMATION
  Report Type: 
  Country: None (occurrence: None)
  Receive Date: 20120726
  Receipt Date: 20110729
  Transmission Date: 20120928
  Serious: No
  Sender: FDA-Public Use
  Company Number: US-ASTRAZENECA-2011SE45803

PATIENT
  Age: 41 Year
  Sex: Male

DRUGS (1)
  1. SEROQUEL [Suspect]
     Route: 048

REACTIONS (5)
  - GASTROINTESTINAL DISORDER [None]
  - SLEEP DISORDER [None]
  - WEIGHT INCREASED [None]
  - BACK DISORDER [None]
  - BIPOLAR I DISORDER [None]
